FAERS Safety Report 8583480-X (Version None)
Quarter: 2012Q3

REPORT INFORMATION
  Report Type: 
  Country: None (occurrence: None)
  Receive Date: 20120809
  Receipt Date: 20120806
  Transmission Date: 20120928
  Serious: Yes (Death, Hospitalization, Other)
  Sender: FDA-Public Use
  Company Number: PHHY2012MY068261

PATIENT
  Age: 61 Year
  Sex: Male

DRUGS (1)
  1. ITRACONAZOLE [Suspect]
     Dosage: 100-200 MG DAILY
     Route: 048

REACTIONS (3)
  - BACTERIAL SEPSIS [None]
  - NOSOCOMIAL INFECTION [None]
  - HEPATITIS [None]
